FAERS Safety Report 23187462 (Version 2)
Quarter: 2023Q4

REPORT INFORMATION
  Report Type: Report from Study
  Country: CA (occurrence: CA)
  Receive Date: 20231115
  Receipt Date: 20231201
  Transmission Date: 20240109
  Serious: Yes (Death)
  Sender: FDA-Public Use
  Company Number: CA-002147023-NVSC2020CA371030

PATIENT

DRUGS (1)
  1. MEKINIST [Suspect]
     Active Substance: TRAMETINIB DIMETHYL SULFOXIDE
     Indication: Product used for unknown indication
     Dosage: 0.5 MG (30 TABS X 9 BOTTLES)
     Route: 065
     Dates: start: 20200207

REACTIONS (2)
  - Neuroendocrine carcinoma [Fatal]
  - General physical health deterioration [Unknown]
